FAERS Safety Report 14808792 (Version 1)
Quarter: 2018Q2

REPORT INFORMATION
  Report Type: Report from Study
  Country: DE (occurrence: DE)
  Receive Date: 20180425
  Receipt Date: 20180425
  Transmission Date: 20180711
  Serious: Yes (Hospitalization, Other)
  Sender: FDA-Public Use
  Company Number: DE-ROCHE-2113911

PATIENT
  Age: 73 Year
  Sex: Female
  Weight: 53 kg

DRUGS (4)
  1. CIMETIDINE [Concomitant]
     Active Substance: CIMETIDINE
     Indication: PRODUCT USED FOR UNKNOWN INDICATION
     Dosage: LAST APPLICATION PRIOR TO THE EVENT ON 2 MAY 2011
     Route: 042
  2. BEVACIZUMAB. [Suspect]
     Active Substance: BEVACIZUMAB
     Indication: BREAST CANCER
     Route: 065
     Dates: start: 20101206
  3. BEVACIZUMAB. [Suspect]
     Active Substance: BEVACIZUMAB
     Route: 065
     Dates: start: 20110411, end: 20110426
  4. PACLITAXEL. [Concomitant]
     Active Substance: PACLITAXEL
     Indication: BREAST CANCER METASTATIC
     Dosage: CYCLE 6, LAST APPLICATION PRIOR TO THE EVENT ON 2 MAY 2011
     Route: 042
     Dates: start: 20101206, end: 20110502

REACTIONS (8)
  - Micturition urgency [Recovered/Resolved]
  - Pyrexia [Unknown]
  - Ileus [Unknown]
  - Acute abdomen [Recovered/Resolved]
  - Aphonia [Recovered/Resolved]
  - Pyrexia [Recovered/Resolved]
  - Chills [Recovered/Resolved]
  - Hypertension [Unknown]

NARRATIVE: CASE EVENT DATE: 20110328
